FAERS Safety Report 4762729-5 (Version None)
Quarter: 2005Q3

REPORT INFORMATION
  Report Type: 
  Country: None (occurrence: None)
  Receive Date: 20050907
  Receipt Date: 20050128
  Transmission Date: 20060218
  Serious: Yes (Hospitalization, Disabling)
  Sender: FDA-Public Use
  Company Number: US-ROCHE-394224

PATIENT
  Age: 16 Year
  Sex: Male
  Weight: 84.8 kg

DRUGS (4)
  1. ACCUTANE [Suspect]
     Indication: ACNE
     Route: 048
     Dates: start: 19990603, end: 19990621
  2. ACCUTANE [Suspect]
     Dosage: ADMINISTERED ON ALTERNATE DAYS
     Route: 048
     Dates: start: 19990621, end: 19990929
  3. ACCUTANE [Suspect]
     Route: 048
     Dates: start: 19990929, end: 20000129
  4. ZITHROMAX [Concomitant]
     Indication: ACNE
     Dates: start: 19990621, end: 19990626

REACTIONS (38)
  - ANAEMIA [None]
  - ANHEDONIA [None]
  - ANXIETY [None]
  - CHILLS [None]
  - COLITIS [None]
  - COLITIS ULCERATIVE [None]
  - DEHYDRATION [None]
  - DEPRESSION [None]
  - DERMATITIS [None]
  - DRY SKIN [None]
  - EPIGASTRIC DISCOMFORT [None]
  - FEELING ABNORMAL [None]
  - GASTROINTESTINAL DISORDER [None]
  - HAEMORRHAGE [None]
  - HAEMORRHOIDS [None]
  - HEADACHE [None]
  - HYPOCHLORAEMIA [None]
  - INFLAMMATORY BOWEL DISEASE [None]
  - INGROWN HAIR [None]
  - INJURY [None]
  - INTESTINAL HAEMORRHAGE [None]
  - LYMPHADENOPATHY [None]
  - MENTAL DISORDER [None]
  - MULTI-ORGAN DISORDER [None]
  - NAUSEA [None]
  - PAIN [None]
  - PITYRIASIS ALBA [None]
  - PROCTITIS [None]
  - PSEUDOFOLLICULITIS BARBAE [None]
  - PSYCHIATRIC SYMPTOM [None]
  - PYREXIA [None]
  - RASH MACULAR [None]
  - RECTAL DISCHARGE [None]
  - RECTAL HAEMORRHAGE [None]
  - SCAR [None]
  - SKIN PAPILLOMA [None]
  - SKIN STRIAE [None]
  - VOMITING [None]
